FAERS Safety Report 5387741-7 (Version None)
Quarter: 2007Q3

REPORT INFORMATION
  Report Type: 
  Country: None (occurrence: None)
  Receive Date: 20070712
  Receipt Date: 20070712
  Transmission Date: 20080115
  Serious: Yes (Hospitalization)
  Sender: FDA-Public Use
  Company Number: None

PATIENT
  Age: 40 Year
  Sex: Male
  Weight: 91.6266 kg

DRUGS (1)
  1. GADOLINIUM UNKNOWN UNKNOWN [Suspect]
     Indication: NUCLEAR MAGNETIC RESONANCE IMAGING
     Dates: start: 20070705, end: 20070705

REACTIONS (6)
  - ABDOMINAL PAIN [None]
  - CHILLS [None]
  - LEUKOPENIA [None]
  - POST PROCEDURAL COMPLICATION [None]
  - PYREXIA [None]
  - RASH [None]
